FAERS Safety Report 8796550 (Version 3)
Quarter: 2012Q4

REPORT INFORMATION
  Report Type: Report from Study
  Country: PL (occurrence: PL)
  Receive Date: 20120920
  Receipt Date: 20121214
  Transmission Date: 20130627
  Serious: Yes (Hospitalization)
  Sender: FDA-Public Use
  Company Number: PHHO2012PL013172

PATIENT
  Age: 45 Year
  Sex: Female
  Weight: 49 kg

DRUGS (6)
  1. FTY [Suspect]
     Indication: MULTIPLE SCLEROSIS
     Dosage: 0.5 mg, QD
     Route: 048
     Dates: start: 20110211, end: 20120910
  2. FTY [Suspect]
     Dosage: 0.5 mg, QD
     Route: 048
     Dates: start: 20120914
  3. CHLORPROTHIXENE [Concomitant]
     Indication: DEPRESSION
     Dosage: 15 mg, TID
     Route: 048
     Dates: start: 201003
  4. BACLOFEN [Concomitant]
     Indication: MUSCLE SPASTICITY
     Dosage: 10 mg, TID
     Route: 048
     Dates: start: 2010
  5. ORAL CONTRACEPTIVE NOS [Concomitant]
  6. ANTIPSYCHOTICS [Concomitant]
     Dosage: UNK

REACTIONS (1)
  - Peripheral artery thrombosis [Recovered/Resolved with Sequelae]
